FAERS Safety Report 6403955-9 (Version None)
Quarter: 2009Q4

REPORT INFORMATION
  Report Type: 
  Country: None (occurrence: None)
  Receive Date: 20091016
  Receipt Date: 20090707
  Transmission Date: 20100525
  Serious: No
  Sender: FDA-Public Use
  Company Number: US-ALEXION-A200900530

PATIENT
  Sex: Male

DRUGS (17)
  1. SOLIRIS [Suspect]
     Indication: PAROXYSMAL NOCTURNAL HAEMOGLOBINURIA
     Dosage: 600 MG, QW
     Route: 042
     Dates: start: 20070410, end: 20070501
  2. SOLIRIS [Suspect]
     Dosage: 900 MG, Q2W
     Route: 042
     Dates: start: 20070508
  3. SOLIRIS [Suspect]
     Dosage: 900 MG, QOW
     Route: 042
  4. PROVENTIL                          /00139501/ [Concomitant]
     Dosage: UNK
  5. SOMA [Concomitant]
     Dosage: 350 MG, PRN
     Route: 048
  6. SYNTHROID [Concomitant]
     Dosage: 125 UG, QD
     Route: 048
  7. VICODIN [Concomitant]
     Dosage: 5/500, QID
     Route: 048
  8. PROCRIT                            /00909301/ [Concomitant]
     Dosage: 80000 IU, QW, PRN
     Route: 058
  9. TYLENOL (CAPLET) [Concomitant]
     Dosage: 500 MG, PRN
     Route: 048
  10. IRON SULFATETHIAMIN COMPOUND TAB [Concomitant]
     Dosage: 325 MG, QD
     Route: 048
  11. ASPIRIN [Concomitant]
     Dosage: 81 MG, QD
     Route: 048
  12. M.V.I. [Concomitant]
     Dosage: UNK
     Route: 048
  13. FOLIC ACID [Concomitant]
     Dosage: 2 MG, QD
     Route: 048
  14. GLUCOPHAGE [Concomitant]
     Dosage: 500 MG, BID
     Route: 048
  15. KLONOPIN [Concomitant]
     Dosage: 0.5 MG, QD
     Route: 048
  16. LOPID [Concomitant]
     Dosage: 600 MG, QD
     Route: 048
  17. EXJADE [Suspect]
     Dosage: 500 MG, BID
     Route: 048

REACTIONS (2)
  - BACK PAIN [None]
  - SPLENOMEGALY [None]
